FAERS Safety Report 7705763-5 (Version None)
Quarter: 2011Q3

REPORT INFORMATION
  Report Type: 
  Country: None (occurrence: None)
  Receive Date: 20110824
  Receipt Date: 20110824
  Transmission Date: 20111222
  Serious: Yes (Life-Threatening)
  Sender: FDA-Public Use
  Company Number: None

PATIENT
  Age: 40 Year
  Sex: Female
  Weight: 54.431 kg

DRUGS (1)
  1. LOSEASONIQUE [Suspect]
     Indication: CONTRACEPTION
     Dosage: 1 DAILY
     Route: 048
     Dates: start: 20100301, end: 20110823

REACTIONS (1)
  - HYPERTENSION [None]
